FAERS Safety Report 20401564 (Version 2)
Quarter: 2022Q1

REPORT INFORMATION
  Report Type: Spontaneous
  Country: US (occurrence: US)
  Receive Date: 20220131
  Receipt Date: 20220201
  Transmission Date: 20220424
  Serious: No
  Sender: FDA-Public Use
  Company Number: US-ABBVIE-21K-163-4045582-00

PATIENT
  Sex: Female

DRUGS (3)
  1. HUMIRA [Suspect]
     Active Substance: ADALIMUMAB
     Indication: Psoriatic arthropathy
     Route: 058
  2. HUMIRA [Suspect]
     Active Substance: ADALIMUMAB
     Route: 058
  3. PREDNISONE [Concomitant]
     Active Substance: PREDNISONE
     Indication: Product used for unknown indication

REACTIONS (9)
  - Psoriatic arthropathy [Unknown]
  - Nausea [Unknown]
  - Pain [Unknown]
  - Inflammation [Unknown]
  - Joint lock [Unknown]
  - Fall [Unknown]
  - Fall [Unknown]
  - Feeling abnormal [Unknown]
  - Nail psoriasis [Unknown]
